FAERS Safety Report 17549640 (Version 1)
Quarter: 2020Q1

REPORT INFORMATION
  Report Type: Spontaneous
  Country: NL (occurrence: NL)
  Receive Date: 20200317
  Receipt Date: 20200317
  Transmission Date: 20200409
  Serious: Yes (Hospitalization)
  Sender: FDA-Public Use
  Company Number: NL-MYLANLABS-2020M1026987

PATIENT
  Age: 84 Year
  Sex: Female

DRUGS (8)
  1. DOXYCYCLINE. [Suspect]
     Active Substance: DOXYCYCLINE
     Indication: ERYTHEMA MIGRANS
     Dosage: TABLET, 100 MG (MILLIGRAM), 1 KEER PER DAG, 2
     Dates: start: 20200110, end: 20200115
  2. BEZAFIBRATE [Concomitant]
     Active Substance: BEZAFIBRATE
     Dosage: 1DD1
  3. FLECAINIDE [Concomitant]
     Active Substance: FLECAINIDE
     Dosage: 1DD1
  4. THYRAX                             /00068001/ [Concomitant]
     Active Substance: LEVOTHYROXINE
     Dosage: 137.5 MCG
  5. CLEMASTINE [Concomitant]
     Active Substance: CLEMASTINE
     Dosage: 2DD1
  6. DIGOXINE [Concomitant]
     Active Substance: DIGOXIN
     Dosage: 1 DD 0,125MG
  7. ESOMEPRAZOL                        /01479301/ [Concomitant]
     Active Substance: ESOMEPRAZOLE
     Dosage: 1DD
  8. APIXABAN [Concomitant]
     Active Substance: APIXABAN
     Dosage: 2DD

REACTIONS (2)
  - Hypertension [Unknown]
  - Hepatic enzyme increased [Recovering/Resolving]

NARRATIVE: CASE EVENT DATE: 20200118
